FAERS Safety Report 14392735 (Version 3)
Quarter: 2018Q1

REPORT INFORMATION
  Report Type: Spontaneous
  Country: US (occurrence: US)
  Receive Date: 20180116
  Receipt Date: 20180208
  Transmission Date: 20180509
  Serious: No
  Sender: FDA-Public Use
  Company Number: US-UNITED THERAPEUTICS-UNT-2018-000415

PATIENT
  Age: 70 Year
  Sex: Female
  Weight: 41.72 kg

DRUGS (2)
  1. OPSUMIT [Concomitant]
     Active Substance: MACITENTAN
     Indication: PRODUCT USED FOR UNKNOWN INDICATION
     Route: 065
  2. REMODULIN [Suspect]
     Active Substance: TREPROSTINIL
     Indication: PULMONARY HYPERTENSION
     Dosage: 0.073 ?G/KG, CONTINUING
     Route: 058
     Dates: start: 20121120

REACTIONS (2)
  - Fall [Recovered/Resolved with Sequelae]
  - Viral infection [Unknown]

NARRATIVE: CASE EVENT DATE: 201801
